FAERS Safety Report 17283364 (Version 2)
Quarter: 2020Q1

REPORT INFORMATION
  Report Type: Spontaneous
  Country: US (occurrence: US)
  Receive Date: 20200117
  Receipt Date: 20200325
  Transmission Date: 20200409
  Serious: No
  Sender: FDA-Public Use
  Company Number: US-ASTRAZENECA-2020SE07595

PATIENT
  Sex: Male
  Weight: 10.4 kg

DRUGS (8)
  1. SYNAGIS [Suspect]
     Active Substance: PALIVIZUMAB
     Indication: DEXTROCARDIA
     Dosage: 100MG/1ML VIAL
     Route: 030
     Dates: start: 201911
  2. FLOVENT [Concomitant]
     Active Substance: FLUTICASONE PROPIONATE
  3. SYNAGIS [Suspect]
     Active Substance: PALIVIZUMAB
     Indication: ASPLENIA
     Dosage: 100MG/1ML VIAL
     Route: 030
     Dates: start: 201911
  4. SYNAGIS [Suspect]
     Active Substance: PALIVIZUMAB
     Indication: PREMATURE LABOUR
     Dosage: 100MG/1ML VIAL
     Route: 030
     Dates: start: 201911
  5. AMOXICILLIN. [Concomitant]
     Active Substance: AMOXICILLIN
  6. SODIUM CHLORIDE. [Concomitant]
     Active Substance: SODIUM CHLORIDE
  7. ALBUTEROL. [Concomitant]
     Active Substance: ALBUTEROL
  8. FLONASE [Concomitant]
     Active Substance: FLUTICASONE PROPIONATE

REACTIONS (1)
  - Nasopharyngitis [Unknown]
